FAERS Safety Report 9800067 (Version 2)
Quarter: 2014Q1

REPORT INFORMATION
  Report Type: Spontaneous
  Country: US (occurrence: US)
  Receive Date: 20140106
  Receipt Date: 20140106
  Transmission Date: 20141002
  Serious: No
  Sender: FDA-Public Use
  Company Number: US-GILEAD-2010-0032139

PATIENT
  Age: 82 Year
  Sex: Female

DRUGS (15)
  1. LETAIRIS [Suspect]
     Indication: PULMONARY ARTERIAL HYPERTENSION
     Route: 048
     Dates: start: 20100708
  2. TPA [Concomitant]
  3. HYDRALAZINE [Concomitant]
  4. BENICAR [Concomitant]
  5. METOPROLOL [Concomitant]
  6. ASPIRIN [Concomitant]
  7. LASIX [Concomitant]
  8. KLOR-CON [Concomitant]
  9. VYTORIN [Concomitant]
  10. ZANTAC [Concomitant]
  11. LACTULOSE [Concomitant]
  12. LEVOTHYROXINE [Concomitant]
  13. ZOLOFT [Concomitant]
  14. FOLIC ACID [Concomitant]
  15. CYANOCOBALAMIN [Concomitant]

REACTIONS (2)
  - Unevaluable event [Unknown]
  - Oedema peripheral [Not Recovered/Not Resolved]
